FAERS Safety Report 4800443-8 (Version None)
Quarter: 2005Q4

REPORT INFORMATION
  Report Type: 
  Country: None (occurrence: None)
  Receive Date: 20051012
  Receipt Date: 20051005
  Transmission Date: 20060501
  Serious: Yes (Hospitalization)
  Sender: FDA-Public Use
  Company Number: 200509484

PATIENT
  Age: 14 Year
  Sex: Female
  Weight: 71.7 kg

DRUGS (1)
  1. IMMUNE GLOBULIN INTRAVENOUS (HUMAN) [Suspect]
     Indication: AUTOIMMUNE DISORDER
     Dosage: 30 G Q1MO IV
     Route: 042
     Dates: start: 20050915, end: 20050915

REACTIONS (4)
  - FEELING ABNORMAL [None]
  - HEADACHE [None]
  - PSEUDOMONAS INFECTION [None]
  - STAPHYLOCOCCAL INFECTION [None]
